FAERS Safety Report 8610044-1 (Version None)
Quarter: 2012Q3

REPORT INFORMATION
  Report Type: 
  Country: None (occurrence: None)
  Receive Date: 20120822
  Receipt Date: 20120814
  Transmission Date: 20120928
  Serious: Yes (Hospitalization)
  Sender: FDA-Public Use
  Company Number: US-GE HEALTHCARE MEDICAL DIAGNOSTICS-INDT-PR-1208S-0006

PATIENT
  Sex: Female

DRUGS (2)
  1. INDIUM- 111 DTPA INJ [Suspect]
     Indication: HYDROCEPHALUS
     Route: 037
     Dates: start: 20120808, end: 20120808
  2. INDIUM- 111 DTPA INJ [Suspect]
     Indication: DIAGNOSTIC PROCEDURE

REACTIONS (6)
  - HYPERSENSITIVITY [None]
  - HEADACHE [None]
  - CHILLS [None]
  - PAIN [None]
  - CSF WHITE BLOOD CELL COUNT INCREASED [None]
  - CSF PROTEIN INCREASED [None]
